FAERS Safety Report 12206617 (Version 1)
Quarter: 2016Q1

REPORT INFORMATION
  Report Type: Spontaneous
  Country: US (occurrence: None)
  Receive Date: 20160323
  Receipt Date: 20160323
  Transmission Date: 20160526
  Serious: Yes (Other)
  Sender: FDA-Public Use
  Company Number: None

PATIENT
  Age: 36 Year
  Sex: Male
  Weight: 65.77 kg

DRUGS (1)
  1. CIPROFLOXACIN 500MG COBALT [Suspect]
     Active Substance: CIPROFLOXACIN
     Indication: URINARY TRACT INFECTION
     Dosage: 20 PILLS TWICE DAILY TAKEN BY MOUTH
     Route: 048
     Dates: start: 20160222, end: 20160223

REACTIONS (2)
  - Neuropathy peripheral [None]
  - Paraesthesia [None]

NARRATIVE: CASE EVENT DATE: 20160223
